FAERS Safety Report 5356437-X (Version None)
Quarter: 2007Q2

REPORT INFORMATION
  Report Type: 
  Country: None (occurrence: None)
  Receive Date: 20070612
  Receipt Date: 20070531
  Transmission Date: 20071010
  Serious: Yes (Other)
  Sender: FDA-Public Use
  Company Number: CHNY2007GB01315

PATIENT
  Age: 58 Year
  Sex: Female

DRUGS (3)
  1. NICOTINE [Suspect]
     Indication: SMOKING CESSATION THERAPY
     Dosage: SEE IMAGE
     Route: 062
     Dates: start: 20070116
  2. PREMARIN [Concomitant]
  3. REMEDEINE (DIHYDROCODEINE, PARACETAMOL) [Concomitant]

REACTIONS (13)
  - APPLICATION SITE ERYTHEMA [None]
  - APPLICATION SITE PRURITUS [None]
  - APPLICATION SITE RASH [None]
  - APPLICATION SITE VESICLES [None]
  - BLISTER [None]
  - DRUG WITHDRAWAL SYNDROME [None]
  - HYPERSENSITIVITY [None]
  - JOINT SWELLING [None]
  - LOCAL REACTION [None]
  - PAIN [None]
  - PRURITUS [None]
  - RASH GENERALISED [None]
  - WEIGHT INCREASED [None]
